FAERS Safety Report 15838872 (Version 2)
Quarter: 2019Q2

REPORT INFORMATION
  Report Type: Spontaneous
  Country: US (occurrence: US)
  Receive Date: 20190117
  Receipt Date: 20190508
  Transmission Date: 20190711
  Serious: No
  Sender: FDA-Public Use
  Company Number: US-PFIZER INC-2019020054

PATIENT
  Age: 68 Year
  Sex: Male

DRUGS (4)
  1. LISINOPRIL. [Concomitant]
     Active Substance: LISINOPRIL
     Dosage: 20 MG, UNK
  2. BABY ASPIRIN [Concomitant]
     Active Substance: ASPIRIN
     Dosage: UNK
  3. GLIMEPIRIDE. [Concomitant]
     Active Substance: GLIMEPIRIDE
     Dosage: 2 MG, UNK
  4. XELJANZ [Suspect]
     Active Substance: TOFACITINIB CITRATE
     Indication: ARTHRITIS
     Dosage: 5 MG, 1X/DAY

REACTIONS (1)
  - Blood pressure abnormal [Unknown]
